FAERS Safety Report 9611708 (Version 1)
Quarter: 2013Q4

REPORT INFORMATION
  Report Type: Spontaneous
  Country: US (occurrence: US)
  Receive Date: 20131010
  Receipt Date: 20131010
  Transmission Date: 20140711
  Serious: No
  Sender: FDA-Public Use
  Company Number: US-PFIZER INC-2013287515

PATIENT
  Age: 60 Year
  Sex: 0

DRUGS (9)
  1. CELEBREX [Suspect]
     Dosage: UNK
  2. LYRICA [Suspect]
     Dosage: UNK
  3. ZOLOFT [Suspect]
     Dosage: UNK
  4. ELAVIL [Suspect]
     Dosage: UNK
  5. PROZAC [Suspect]
     Dosage: UNK
  6. MOTRIN [Suspect]
     Dosage: UNK
  7. ESKALITH [Suspect]
     Dosage: UNK
  8. VIOXX [Suspect]
     Dosage: UNK
  9. DEPAKOTE [Suspect]
     Dosage: UNK

REACTIONS (1)
  - Drug hypersensitivity [Unknown]
